FAERS Safety Report 8198816-1 (Version None)
Quarter: 2012Q1

REPORT INFORMATION
  Report Type: 
  Country: None (occurrence: None)
  Receive Date: 20120309
  Receipt Date: 20120221
  Transmission Date: 20120608
  Serious: No
  Sender: FDA-Public Use
  Company Number: US-AMGEN-USASP2012008476

PATIENT
  Age: 68 Year
  Sex: Female

DRUGS (6)
  1. TRILIPIX [Concomitant]
     Dosage: UNK
  2. CALCIUM [Concomitant]
     Dosage: UNK
  3. CELEBREX [Concomitant]
     Dosage: UNK
  4. PROBIOTIC [Concomitant]
     Dosage: UNK
  5. VITAMIN D [Concomitant]
     Dosage: UNK
  6. PROLIA [Suspect]
     Indication: OSTEOPOROSIS POSTMENOPAUSAL
     Dosage: 60 MG, Q6MO
     Dates: start: 20110831

REACTIONS (7)
  - BACK PAIN [None]
  - FIBROMYALGIA [None]
  - DRUG EFFECT DECREASED [None]
  - PAIN IN EXTREMITY [None]
  - PHARYNGEAL ERYTHEMA [None]
  - DISBACTERIOSIS [None]
  - OROPHARYNGEAL PAIN [None]
